FAERS Safety Report 12763749 (Version 3)
Quarter: 2016Q4

REPORT INFORMATION
  Report Type: Report from Study
  Country: IT (occurrence: IT)
  Receive Date: 20160920
  Receipt Date: 20161208
  Transmission Date: 20170207
  Serious: Yes (Other)
  Sender: FDA-Public Use
  Company Number: IT-JNJFOC-20160208398

PATIENT
  Age: 51 Year
  Sex: Female
  Weight: 60 kg

DRUGS (18)
  1. TRABECTEDIN [Suspect]
     Active Substance: TRABECTEDIN
     Indication: OVARIAN CANCER RECURRENT
     Dosage: CYCLE 1
     Route: 042
     Dates: start: 20151117
  2. DOXORUBICIN HYDROCHLORIDE. [Suspect]
     Active Substance: DOXORUBICIN HYDROCHLORIDE
     Indication: OVARIAN CANCER RECURRENT
     Dosage: 50 (UNSPECIFIED UNITS)
     Route: 042
     Dates: start: 20151210, end: 20151210
  3. DOXORUBICIN HYDROCHLORIDE. [Suspect]
     Active Substance: DOXORUBICIN HYDROCHLORIDE
     Indication: OVARIAN CANCER RECURRENT
     Dosage: 50 (UNITS AND FREQUENCY WAS NOT REPORTED)
     Route: 042
     Dates: start: 20151027
  4. DOXORUBICIN HYDROCHLORIDE. [Suspect]
     Active Substance: DOXORUBICIN HYDROCHLORIDE
     Indication: OVARIAN CANCER RECURRENT
     Dosage: 39 (UNSPECIFIED UNITS)
     Route: 042
     Dates: start: 20160518, end: 20160518
  5. DOXORUBICIN HYDROCHLORIDE. [Suspect]
     Active Substance: DOXORUBICIN HYDROCHLORIDE
     Indication: OVARIAN CANCER RECURRENT
     Dosage: 38 (UNITS AND FREQUENCY WAS NOT REPORTED)
     Route: 042
     Dates: start: 20151230, end: 20151230
  6. TRABECTEDIN [Suspect]
     Active Substance: TRABECTEDIN
     Indication: OVARIAN CANCER RECURRENT
     Dosage: 1.85 (UNSPECIFIED UNITS)
     Route: 042
     Dates: start: 20151210, end: 20151210
  7. TRABECTEDIN [Suspect]
     Active Substance: TRABECTEDIN
     Indication: OVARIAN CANCER RECURRENT
     Dosage: CYCLE 6
     Route: 042
     Dates: start: 20160211
  8. TRABECTEDIN [Suspect]
     Active Substance: TRABECTEDIN
     Indication: OVARIAN CANCER RECURRENT
     Dosage: 1.46 (UNSPECIFIED UNITS)
     Route: 042
     Dates: start: 20160518, end: 20160518
  9. DOXORUBICIN HYDROCHLORIDE. [Suspect]
     Active Substance: DOXORUBICIN HYDROCHLORIDE
     Indication: OVARIAN CANCER RECURRENT
     Dosage: 38 (UNITS AND FREQUENCY WAS NOT REPORTED); CYCLE 6
     Route: 042
     Dates: start: 20160211
  10. DOXORUBICIN HYDROCHLORIDE. [Suspect]
     Active Substance: DOXORUBICIN HYDROCHLORIDE
     Indication: OVARIAN CANCER RECURRENT
     Dosage: 39 (UNSPECIFIED UNITS), CYCLE 11 TO CYCLE 15
     Route: 042
     Dates: start: 20160610, end: 20160930
  11. DOXORUBICIN HYDROCHLORIDE. [Suspect]
     Active Substance: DOXORUBICIN HYDROCHLORIDE
     Indication: OVARIAN CANCER RECURRENT
     Dosage: 38 (UNITS AND FREQUENCY WAS NOT REPORTED); CYCLE 5
     Route: 042
     Dates: start: 20160121, end: 20160121
  12. TRABECTEDIN [Suspect]
     Active Substance: TRABECTEDIN
     Indication: OVARIAN CANCER RECURRENT
     Dosage: CYCLE 11 TO 15
     Route: 042
     Dates: start: 20160610, end: 20160930
  13. TRABECTEDIN [Suspect]
     Active Substance: TRABECTEDIN
     Indication: OVARIAN CANCER RECURRENT
     Route: 042
     Dates: start: 20151027
  14. TRABECTEDIN [Suspect]
     Active Substance: TRABECTEDIN
     Indication: OVARIAN CANCER RECURRENT
     Dosage: 1.58 (UNSPECIFIED UNITS) CYCLE 7
     Route: 042
     Dates: start: 20160303, end: 20160303
  15. TRABECTEDIN [Suspect]
     Active Substance: TRABECTEDIN
     Indication: OVARIAN CANCER RECURRENT
     Dosage: CYCLE 5
     Route: 042
     Dates: start: 20160121, end: 20160121
  16. TRABECTEDIN [Suspect]
     Active Substance: TRABECTEDIN
     Indication: OVARIAN CANCER RECURRENT
     Dosage: CYCLE 2
     Route: 042
     Dates: start: 20151230, end: 20151230
  17. DOXORUBICIN HYDROCHLORIDE. [Suspect]
     Active Substance: DOXORUBICIN HYDROCHLORIDE
     Indication: OVARIAN CANCER RECURRENT
     Dosage: 40 (UNITS AND FREQUENCY WAS NOT REPORTED); CYCLE 7
     Route: 042
     Dates: start: 20160303
  18. DOXORUBICIN HYDROCHLORIDE. [Suspect]
     Active Substance: DOXORUBICIN HYDROCHLORIDE
     Indication: OVARIAN CANCER RECURRENT
     Dosage: CYCLE 1; 50 (UNITS AND FREQUENCY WAS NOT REPORTED)
     Route: 042
     Dates: start: 20151117

REACTIONS (15)
  - Neutropenia [Recovered/Resolved]
  - Mucosal inflammation [Recovered/Resolved]
  - Hypertransaminasaemia [Recovered/Resolved]
  - Palmar-plantar erythrodysaesthesia syndrome [Unknown]
  - Neutropenia [Recovered/Resolved]
  - Mucosal inflammation [Recovered/Resolved]
  - Neutropenia [Not Recovered/Not Resolved]
  - Anal pruritus [Unknown]
  - Blood creatine phosphokinase [Recovered/Resolved]
  - Neutropenia [Recovered/Resolved]
  - Neutropenia [Recovered/Resolved]
  - Hypertransaminasaemia [Recovered/Resolved]
  - Neutropenia [Not Recovered/Not Resolved]
  - Mucosal inflammation [Unknown]
  - Mucosal inflammation [Recovered/Resolved]

NARRATIVE: CASE EVENT DATE: 20151116
